FAERS Safety Report 6056638-1 (Version None)
Quarter: 2009Q1

REPORT INFORMATION
  Report Type: 
  Country: None (occurrence: None)
  Receive Date: 20090129
  Receipt Date: 20090120
  Transmission Date: 20090719
  Serious: Yes (Other)
  Sender: FDA-Public Use
  Company Number: FR-PFIZER INC-2008081455

PATIENT

DRUGS (3)
  1. LYRICA [Suspect]
     Indication: PAIN
     Dates: start: 20070208, end: 20080923
  2. DAFALGAN [Concomitant]
     Route: 048
     Dates: start: 20070208
  3. EFFERALGAN [Concomitant]
     Indication: PAIN
     Route: 048
     Dates: start: 20080301

REACTIONS (3)
  - BLOOD CREATINE PHOSPHOKINASE INCREASED [None]
  - CYTOLYTIC HEPATITIS [None]
  - TRANSAMINASES INCREASED [None]
